FAERS Safety Report 7654321-X (Version None)
Quarter: 2011Q3

REPORT INFORMATION
  Report Type: 
  Country: None (occurrence: None)
  Receive Date: 20110803
  Receipt Date: 20110726
  Transmission Date: 20111222
  Serious: Yes (Hospitalization, Other)
  Sender: FDA-Public Use
  Company Number: US-JNJFOC-20110510516

PATIENT
  Sex: Male
  Weight: 78 kg

DRUGS (7)
  1. LITHIUM CARBONATE [Concomitant]
     Dosage: 300 MG 2 TABLETS
     Route: 048
  2. VISTARIL [Concomitant]
     Dosage: AT BED TIME
     Route: 048
  3. GEMFIBROZIL [Concomitant]
     Route: 048
  4. INVEGA SUSTENNA [Suspect]
     Indication: SCHIZOPHRENIA
     Route: 030
  5. COGENTIN [Concomitant]
     Route: 048
  6. PROZAC [Concomitant]
     Route: 048
  7. ATIVAN [Concomitant]
     Route: 048

REACTIONS (8)
  - METABOLIC ACIDOSIS [None]
  - SELF-MEDICATION [None]
  - INSOMNIA [None]
  - NEUROLEPTIC MALIGNANT SYNDROME [None]
  - RESPIRATORY ACIDOSIS [None]
  - MENTAL STATUS CHANGES [None]
  - LIVER FUNCTION TEST ABNORMAL [None]
  - INTERNATIONAL NORMALISED RATIO INCREASED [None]
